FAERS Safety Report 16257574 (Version 3)
Quarter: 2019Q4

REPORT INFORMATION
  Report Type: Spontaneous
  Country: FR (occurrence: FR)
  Receive Date: 20190430
  Receipt Date: 20191210
  Transmission Date: 20200122
  Serious: Yes (Other)
  Sender: FDA-Public Use
  Company Number: FR-PFIZER INC-2019178686

PATIENT
  Age: 62 Year
  Sex: Male
  Weight: 81 kg

DRUGS (8)
  1. PREVISCAN [FLUINDIONE] [Suspect]
     Active Substance: FLUINDIONE
     Indication: ATRIAL FIBRILLATION
     Dosage: 20 MG, ALTERNATE DAY (ALTERNATION BETWEEN 20 AND 25 MG)
     Route: 048
  2. LASILIX [FUROSEMIDE] [Suspect]
     Active Substance: FUROSEMIDE
     Indication: HYPERTENSION
     Dosage: 60 MG, 1X/DAY
     Route: 048
  3. NEBIVOLOL ALMUS [Suspect]
     Active Substance: NEBIVOLOL HYDROCHLORIDE
     Indication: HYPERTENSION
     Dosage: 2.5 MG, 1X/DAY
     Route: 048
  4. ALDACTONE [Suspect]
     Active Substance: SPIRONOLACTONE
     Indication: HYPERTENSION
     Dosage: 50 MG, 1X/DAY (1 DF A DAY)
     Route: 048
  5. LOSARTAN BIOGARAN [Suspect]
     Active Substance: LOSARTAN
     Indication: HYPERTENSION
     Dosage: 50 MG, 1X/DAY
     Route: 048
  6. PREVISCAN [FLUINDIONE] [Suspect]
     Active Substance: FLUINDIONE
     Dosage: 25 MG, ALTERNATE DAY (ALTERNATION BETWEEN 20 AND 25 MG)
     Route: 048
  7. INEGY [Suspect]
     Active Substance: EZETIMIBE\SIMVASTATIN
     Indication: HYPERCHOLESTEROLAEMIA
     Dosage: 1 DF, 1X/DAY (STRENGTH: 10 MG/40 MG)
     Route: 048
  8. ODEFSEY [Suspect]
     Active Substance: EMTRICITABINE\RILPIVIRINE HYDROCHLORIDE\TENOFOVIR ALAFENAMIDE FUMARATE
     Indication: HIV INFECTION
     Dosage: 1 DF, 1X/DAY (STRENGTH: 200 MG/25 MG/25MG)
     Route: 048
     Dates: start: 20180903, end: 20190308

REACTIONS (3)
  - Poor quality sleep [Not Recovered/Not Resolved]
  - Insomnia [Recovered/Resolved]
  - Abnormal dreams [Recovered/Resolved]

NARRATIVE: CASE EVENT DATE: 2019
